FAERS Safety Report 21630100 (Version 1)
Quarter: 2022Q4

REPORT INFORMATION
  Report Type: Spontaneous
  Country: CN (occurrence: CN)
  Receive Date: 20221122
  Receipt Date: 20221122
  Transmission Date: 20230113
  Serious: Yes (Hospitalization, Other)
  Sender: FDA-Public Use
  Company Number: CN-009507513-2211CHN005806

PATIENT
  Age: 72 Year
  Sex: Male
  Weight: 59.5 kg

DRUGS (1)
  1. KEYTRUDA [Suspect]
     Active Substance: PEMBROLIZUMAB
     Indication: Squamous cell carcinoma of lung
     Dosage: 200 MG, ONCE (1 TIME IN ONE DAY)
     Route: 041
     Dates: start: 20220907, end: 20221002

REACTIONS (4)
  - Drug eruption [Recovering/Resolving]
  - Erythema multiforme [Recovering/Resolving]
  - Anal ulcer [Unknown]
  - Oral herpes [Recovering/Resolving]

NARRATIVE: CASE EVENT DATE: 20221023
